FAERS Safety Report 7994385-7 (Version None)
Quarter: 2011Q4

REPORT INFORMATION
  Report Type: 
  Country: None (occurrence: None)
  Receive Date: 20111220
  Receipt Date: 20111213
  Transmission Date: 20120403
  Serious: Yes (Hospitalization, Other)
  Sender: FDA-Public Use
  Company Number: JP-BAYER-2011-101187

PATIENT
  Age: 75 Year
  Sex: Male
  Weight: 51 kg

DRUGS (10)
  1. NEXAVAR [Suspect]
     Indication: HEPATIC NEOPLASM MALIGNANT
     Dosage: 400 MG, QD
     Route: 048
     Dates: start: 20110128
  2. LASIX [Concomitant]
     Indication: HEPATIC CIRRHOSIS
     Dosage: DAILY DOSE 40 MG
     Route: 065
  3. NORVASC [Concomitant]
     Indication: HYPERTENSION
     Dosage: DAILY DOSE 5 MG
     Route: 048
  4. URSO 250 [Concomitant]
     Indication: HEPATIC CIRRHOSIS
     Dosage: DAILY DOSE 600 MG
     Route: 048
  5. AMINOLEBAN EN [Concomitant]
     Indication: HEPATIC CIRRHOSIS
     Dosage: DAILY DOSE 3 DF
     Route: 048
  6. NEXAVAR [Suspect]
     Dosage: DAILY DOSE 400 MG
     Route: 048
     Dates: start: 20111019, end: 20111118
  7. ALDACTONE [Concomitant]
     Indication: HEPATIC CIRRHOSIS
     Dosage: DAILY DOSE 50 MG
     Route: 048
  8. MONILAC [Concomitant]
     Indication: HEPATIC CIRRHOSIS
     Dosage: DAILY DOSE 3 DF
     Route: 048
  9. LANSOPRAZOLE [Concomitant]
     Indication: VARICES OESOPHAGEAL
     Dosage: DAILY DOSE 15 MG
     Route: 065
  10. DIOVAN [Concomitant]
     Indication: HYPERTENSION
     Dosage: DAILY DOSE 80 MG
     Route: 048

REACTIONS (2)
  - HEPATIC INFARCTION [None]
  - OESOPHAGEAL VARICES HAEMORRHAGE [None]
